FAERS Safety Report 15549720 (Version 1)
Quarter: 2018Q4

REPORT INFORMATION
  Report Type: Spontaneous
  Country: US (occurrence: US)
  Receive Date: 20181018
  Receipt Date: 20181018
  Transmission Date: 20190205
  Serious: Yes (Hospitalization)
  Sender: FDA-Public Use
  Company Number: None

PATIENT
  Age: 1 Year
  Sex: Male

DRUGS (24)
  1. ALBUTEROL. [Concomitant]
     Active Substance: ALBUTEROL
  2. LEVOTHYROXIN [Concomitant]
     Active Substance: LEVOTHYROXINE
  3. ZONISAMIDE. [Concomitant]
     Active Substance: ZONISAMIDE
  4. VIGABATRIN 600MG POWDER [Suspect]
     Active Substance: VIGABATRIN
     Indication: OPTIC NERVE DISORDER
     Route: 048
     Dates: start: 201805
  5. VIGABATRIN 600MG POWDER [Suspect]
     Active Substance: VIGABATRIN
     Indication: SEPTO-OPTIC DYSPLASIA
     Route: 048
     Dates: start: 201805
  6. FLUCONAZOLE. [Concomitant]
     Active Substance: FLUCONAZOLE
  7. FAMOTIDINE. [Concomitant]
     Active Substance: FAMOTIDINE
  8. MULTI VIT [Concomitant]
  9. IBUPROFEN. [Concomitant]
     Active Substance: IBUPROFEN
  10. VIGABATRIN 600MG POWDER [Suspect]
     Active Substance: VIGABATRIN
     Route: 048
     Dates: start: 201805
  11. VIGABATRIN 600MG POWDER [Suspect]
     Active Substance: VIGABATRIN
     Route: 048
  12. DESMOPRESSIN [Concomitant]
     Active Substance: DESMOPRESSIN
  13. DIAZEPAM. [Concomitant]
     Active Substance: DIAZEPAM
  14. GLYCOPYRROL [Concomitant]
  15. KEPPRA [Concomitant]
     Active Substance: LEVETIRACETAM
  16. LEVETIRACETA [Concomitant]
  17. MIRALAX [Concomitant]
     Active Substance: POLYETHYLENE GLYCOL 3350
  18. A-HYDROCORT [Concomitant]
     Active Substance: HYDROCORTISONE SODIUM SUCCINATE
  19. SODIUM BICAR [Concomitant]
  20. TYLENOL [Concomitant]
     Active Substance: ACETAMINOPHEN
  21. IBUPROFEN. [Concomitant]
     Active Substance: IBUPROFEN
  22. PHENOBARB [Concomitant]
     Active Substance: PHENOBARBITAL SODIUM
  23. MYSTATIN [Concomitant]
  24. ONDANSETRON [Concomitant]
     Active Substance: ONDANSETRON

REACTIONS (1)
  - Therapy change [None]

NARRATIVE: CASE EVENT DATE: 20181002
